FAERS Safety Report 7403649-7 (Version None)
Quarter: 2011Q2

REPORT INFORMATION
  Report Type: 
  Country: None (occurrence: None)
  Receive Date: 20110408
  Receipt Date: 20110328
  Transmission Date: 20111010
  Serious: Yes (Death, Hospitalization, Other)
  Sender: FDA-Public Use
  Company Number: PHHY2011FR12327

PATIENT
  Sex: Female

DRUGS (10)
  1. ENDOXAN [Suspect]
     Indication: BONE MARROW TRANSPLANT
     Dosage: 1360 MG, QD
     Route: 042
     Dates: start: 20101113, end: 20101115
  2. FLUDARABINE [Suspect]
     Indication: BONE MARROW TRANSPLANT
     Dosage: 54 MG, QD
     Route: 042
     Dates: start: 20101113, end: 20101115
  3. SOLU-MEDROL [Concomitant]
     Dosage: UNK
     Dates: start: 20101111
  4. FLUDARABINE [Suspect]
     Dosage: 30 MG/M2, ON DAY 1, DAY2 AND DAY3
  5. METHOTREXATE [Suspect]
     Indication: PROPHYLAXIS AGAINST GRAFT VERSUS HOST DISEASE
     Dosage: 240 MG, DAILY ON DAY 1, ON DAY 3, ON DAY 6 AND DAY 11
     Dates: start: 20101118, end: 20101128
  6. THYMOGLOBULIN [Suspect]
     Indication: BONE MARROW CONDITIONING REGIMEN
     Dosage: 200 MG, QD
     Dates: start: 20101111, end: 20101112
  7. SANDIMMUNE [Suspect]
     Indication: PROPHYLAXIS AGAINST GRAFT VERSUS HOST DISEASE
     Dosage: 240 MG, QD
     Route: 042
     Dates: start: 20101115, end: 20101119
  8. REVLIMID [Suspect]
     Indication: MYELOMA RECURRENCE
     Dosage: UNK
     Route: 048
     Dates: start: 20100201, end: 20101101
  9. ENDOXAN [Suspect]
     Dosage: 750 MG/M2, ON DAY1, DAY 2 ND DAY3
  10. LYRICA [Concomitant]
     Dosage: 2 DF/DAY

REACTIONS (30)
  - HYPOCALCAEMIA [None]
  - ANAEMIA HAEMOLYTIC AUTOIMMUNE [None]
  - FEBRILE BONE MARROW APLASIA [None]
  - HYPERTHERMIA [None]
  - PETECHIAE [None]
  - BLADDER DILATATION [None]
  - HYPOKALAEMIA [None]
  - RESPIRATORY DISTRESS [None]
  - ENCEPHALITIS [None]
  - HEMIPARESIS [None]
  - CONVULSION [None]
  - OEDEMA [None]
  - RENAL FAILURE ACUTE [None]
  - HYPOMAGNESAEMIA [None]
  - MYOCLONUS [None]
  - BLOOD PHOSPHORUS DECREASED [None]
  - CONFUSIONAL STATE [None]
  - DISTURBANCE IN ATTENTION [None]
  - PNEUMONIA [None]
  - HEPATOMEGALY [None]
  - PYREXIA [None]
  - SKIN NECROSIS [None]
  - HEPATOTOXICITY [None]
  - CYTOLYTIC HEPATITIS [None]
  - APNOEA [None]
  - MULTI-ORGAN FAILURE [None]
  - SEPSIS [None]
  - HYPERTENSION [None]
  - NERVOUS SYSTEM DISORDER [None]
  - NEPHROPATHY TOXIC [None]
